FAERS Safety Report 6807054-3 (Version None)
Quarter: 2010Q2

REPORT INFORMATION
  Report Type: 
  Country: None (occurrence: None)
  Receive Date: 20100629
  Receipt Date: 20080701
  Transmission Date: 20101027
  Serious: No
  Sender: FDA-Public Use
  Company Number: US-PFIZER INC-2008055623

PATIENT
  Sex: Male
  Weight: 79.5 kg

DRUGS (1)
  1. XANAX XR [Suspect]
     Indication: ANXIETY
     Route: 048
     Dates: start: 20080601

REACTIONS (2)
  - FATIGUE [None]
  - SOMNOLENCE [None]
